FAERS Safety Report 21436072 (Version 2)
Quarter: 2022Q4

REPORT INFORMATION
  Report Type: Spontaneous
  Country: DE (occurrence: None)
  Receive Date: 20221010
  Receipt Date: 20221109
  Transmission Date: 20230112
  Serious: Yes (Hospitalization, Other)
  Sender: FDA-Public Use
  Company Number: DE-ROCHE-3144684

PATIENT
  Sex: Male

DRUGS (1)
  1. TOCILIZUMAB [Suspect]
     Active Substance: TOCILIZUMAB
     Indication: Giant cell arteritis
     Dosage: 162MH/0.9M
     Route: 058
     Dates: end: 202209

REACTIONS (8)
  - Urticaria [Unknown]
  - Pustule [Unknown]
  - Rash [Unknown]
  - Blood pressure increased [Unknown]
  - Product complaint [Unknown]
  - Diverticulitis [Unknown]
  - COVID-19 [Unknown]
  - Inflammation [Unknown]

NARRATIVE: CASE EVENT DATE: 20220101
